FAERS Safety Report 16297940 (Version 4)
Quarter: 2021Q1

REPORT INFORMATION
  Report Type: Report from Study
  Country: US (occurrence: US)
  Receive Date: 20190510
  Receipt Date: 20210330
  Transmission Date: 20210419
  Serious: Yes (Hospitalization)
  Sender: FDA-Public Use
  Company Number: US-SHIRE-US201915286

PATIENT
  Age: 47 Year
  Sex: Female

DRUGS (8)
  1. TEDUGLUTIDE [Suspect]
     Active Substance: TEDUGLUTIDE
     Dosage: 0.3250, UNK, QD
     Route: 058
     Dates: start: 20171128, end: 20210315
  2. TEDUGLUTIDE [Suspect]
     Active Substance: TEDUGLUTIDE
     Dosage: 0.3250, UNK, QD
     Route: 058
     Dates: start: 20171128, end: 20210315
  3. TEDUGLUTIDE [Suspect]
     Active Substance: TEDUGLUTIDE
     Indication: SHORT-BOWEL SYNDROME
     Dosage: 0.33 MILLILITER, QD
     Route: 065
     Dates: start: 20181012
  4. TEDUGLUTIDE [Suspect]
     Active Substance: TEDUGLUTIDE
     Indication: SHORT-BOWEL SYNDROME
     Dosage: 0.33 MILLILITER, QD
     Route: 065
     Dates: start: 20181012
  5. TEDUGLUTIDE [Suspect]
     Active Substance: TEDUGLUTIDE
     Indication: SHORT-BOWEL SYNDROME
     Dosage: 0.33 MILLILITER, QD
     Route: 065
     Dates: start: 20181012
  6. TEDUGLUTIDE [Suspect]
     Active Substance: TEDUGLUTIDE
     Dosage: 0.3250, UNK, QD
     Route: 058
     Dates: start: 20171128, end: 20210315
  7. TEDUGLUTIDE [Suspect]
     Active Substance: TEDUGLUTIDE
     Indication: SHORT-BOWEL SYNDROME
     Dosage: 0.33 MILLILITER, QD
     Route: 065
     Dates: start: 20181012
  8. TEDUGLUTIDE [Suspect]
     Active Substance: TEDUGLUTIDE
     Dosage: 0.3250, UNK, QD
     Route: 058
     Dates: start: 20171128, end: 20210315

REACTIONS (2)
  - Hospitalisation [Unknown]
  - Abdominal distension [Unknown]

NARRATIVE: CASE EVENT DATE: 201906
